FAERS Safety Report 15230974 (Version 2)
Quarter: 2022Q3

REPORT INFORMATION
  Report Type: Spontaneous
  Country: US (occurrence: US)
  Receive Date: 20180802
  Receipt Date: 20220805
  Transmission Date: 20221027
  Serious: Yes (Other)
  Sender: FDA-Public Use
  Company Number: US-ACCORD-063224

PATIENT
  Age: 38 Year
  Sex: Female
  Weight: 85.73 kg

DRUGS (17)
  1. DOCETAXEL [Suspect]
     Active Substance: DOCETAXEL
     Indication: Breast cancer stage I
     Dosage: NO OF CYCLE: 06
     Route: 042
     Dates: start: 20160825, end: 20161208
  2. NEOSAR [Suspect]
     Active Substance: CYCLOPHOSPHAMIDE
     Indication: Breast cancer stage I
     Dosage: NO OF CYCLE: 06
     Route: 042
     Dates: start: 20160825, end: 20161208
  3. PALONOSETRON HYDROCHLORIDE [Concomitant]
     Active Substance: PALONOSETRON HYDROCHLORIDE
     Route: 042
     Dates: start: 20160825
  4. DEXAMETHASONE [Concomitant]
     Active Substance: DEXAMETHASONE
     Route: 042
     Dates: start: 20160825
  5. DIPHENHYDRAMINE [Concomitant]
     Active Substance: DIPHENHYDRAMINE
     Route: 042
     Dates: start: 20160825
  6. RANITIDINE HYDROCHLORIDE [Concomitant]
     Active Substance: RANITIDINE HYDROCHLORIDE
     Route: 042
     Dates: start: 20160825
  7. DEXAMETHASONE SODIUM PHOSPHATE [Concomitant]
     Active Substance: DEXAMETHASONE SODIUM PHOSPHATE
     Route: 042
     Dates: start: 20160825
  8. ALBUTEROL SULFATE [Concomitant]
     Active Substance: ALBUTEROL SULFATE
     Route: 048
  9. BIOTIN [Concomitant]
     Active Substance: BIOTIN
     Route: 048
  10. CALCIUM [Concomitant]
     Active Substance: CALCIUM
     Route: 048
  11. CLARITIN [Concomitant]
     Active Substance: LORATADINE
     Route: 048
  12. CLINDAMYCIN PHOSPHATE [Concomitant]
     Active Substance: CLINDAMYCIN PHOSPHATE
     Route: 061
  13. GABAPENTIN [Concomitant]
     Active Substance: GABAPENTIN
     Dosage: STRENGTH: 100 MG ??DOSAGE: DAILY PRN
     Route: 048
  14. KEFLEX [Concomitant]
     Active Substance: CEPHALEXIN
     Route: 048
  15. SINGULAIR [Concomitant]
     Active Substance: MONTELUKAST SODIUM
     Route: 048
  16. SYMBICORT [Concomitant]
     Active Substance: BUDESONIDE\FORMOTEROL FUMARATE DIHYDRATE
     Route: 055
  17. VITAMIN D [Concomitant]
     Active Substance: VITAMIN D NOS
     Dosage: DOSAGE: Q 7 DAYS
     Route: 048

REACTIONS (1)
  - Alopecia [Not Recovered/Not Resolved]

NARRATIVE: CASE EVENT DATE: 20160801
